FAERS Safety Report 18141817 (Version 1)
Quarter: 2020Q3

REPORT INFORMATION
  Report Type: Spontaneous
  Country: AE (occurrence: AE)
  Receive Date: 20200812
  Receipt Date: 20200812
  Transmission Date: 20201103
  Serious: Yes (Hospitalization)
  Sender: FDA-Public Use
  Company Number: AE-CELGENEUS-ARE-20200801469

PATIENT

DRUGS (2)
  1. VIDAZA [Suspect]
     Active Substance: AZACITIDINE
     Dosage: DOSE REDUCED BY 33%
     Route: 058
     Dates: start: 2020
  2. VIDAZA [Suspect]
     Active Substance: AZACITIDINE
     Indication: MYELODYSPLASTIC SYNDROME
     Dosage: 75 MILLIGRAM/SQ. METER
     Route: 058
     Dates: start: 202007

REACTIONS (3)
  - Thrombosis [Unknown]
  - Haematotoxicity [Unknown]
  - Sepsis [Unknown]

NARRATIVE: CASE EVENT DATE: 2020
